FAERS Safety Report 14585775 (Version 3)
Quarter: 2018Q1

REPORT INFORMATION
  Report Type: Report from Study
  Country: US (occurrence: US)
  Receive Date: 20180301
  Receipt Date: 20180330
  Transmission Date: 20180509
  Serious: Yes (Other)
  Sender: FDA-Public Use
  Company Number: US-TESARO, INC-US-2017TSO02325

PATIENT

DRUGS (7)
  1. ZEJULA [Suspect]
     Active Substance: NIRAPARIB
     Dosage: 300 MG, QD
     Route: 048
     Dates: start: 20170830, end: 20170906
  2. ZEJULA [Suspect]
     Active Substance: NIRAPARIB
     Dosage: 200 MG, QD
     Route: 048
     Dates: end: 20171220
  3. ZEJULA [Suspect]
     Active Substance: NIRAPARIB
     Indication: METASTASES TO LIVER
     Dosage: 200 MG, QD
     Route: 048
     Dates: start: 20170802, end: 20170829
  4. ZEJULA [Suspect]
     Active Substance: NIRAPARIB
     Dosage: 100 MG, BID
     Route: 048
     Dates: start: 20180316
  5. ZEJULA [Suspect]
     Active Substance: NIRAPARIB
     Indication: OVARIAN CANCER
     Dosage: 300 MG, QD
     Route: 048
     Dates: start: 20170731
  6. ZEJULA [Suspect]
     Active Substance: NIRAPARIB
     Dosage: 100 MG, QD
     Route: 048
     Dates: start: 201801
  7. ZEJULA [Suspect]
     Active Substance: NIRAPARIB
     Dosage: 200 MG, QD
     Route: 048
     Dates: start: 20170907

REACTIONS (30)
  - Neuropathy peripheral [Not Recovered/Not Resolved]
  - Gastrointestinal stoma complication [Unknown]
  - Confusional state [Recovered/Resolved]
  - Middle insomnia [Unknown]
  - Nausea [Unknown]
  - Vomiting [Unknown]
  - Metastases to liver [Recovering/Resolving]
  - Metastases to stomach [Recovering/Resolving]
  - Malaise [Unknown]
  - Asthenia [Unknown]
  - Carcinoembryonic antigen increased [Not Recovered/Not Resolved]
  - Memory impairment [Unknown]
  - Feeling abnormal [Recovered/Resolved]
  - Insomnia [Unknown]
  - Arthralgia [Unknown]
  - Vitamin D decreased [Not Recovered/Not Resolved]
  - Dysgeusia [Unknown]
  - Inappropriate schedule of drug administration [Not Recovered/Not Resolved]
  - Cognitive disorder [Recovered/Resolved]
  - Fatigue [Recovered/Resolved]
  - Diarrhoea [Unknown]
  - Loss of personal independence in daily activities [Unknown]
  - Amnesia [Recovered/Resolved]
  - Performance status decreased [Unknown]
  - Dizziness [Unknown]
  - Red blood cell count decreased [Not Recovered/Not Resolved]
  - Influenza [Unknown]
  - Emotional distress [Unknown]
  - Carbohydrate antigen 125 increased [Unknown]
  - Constipation [Not Recovered/Not Resolved]

NARRATIVE: CASE EVENT DATE: 201708
